FAERS Safety Report 14786800 (Version 3)
Quarter: 2018Q4

REPORT INFORMATION
  Report Type: Report from Study
  Country: FR (occurrence: FR)
  Receive Date: 20180420
  Receipt Date: 20181108
  Transmission Date: 20190204
  Serious: Yes (Other)
  Sender: FDA-Public Use
  Company Number: FR-BAUSCH-BL-2018-010301

PATIENT
  Age: 70 Year
  Sex: Male

DRUGS (24)
  1. METFORMIN [Suspect]
     Active Substance: METFORMIN HYDROCHLORIDE
     Indication: PRODUCT USED FOR UNKNOWN INDICATION
     Route: 065
     Dates: start: 20140708
  2. SOLUPRED [PREDNISOLONE METASULFOBENZOATE SODIUM] [Concomitant]
     Active Substance: PREDNISOLONE SODIUM METAZOATE
     Route: 065
     Dates: start: 20150120, end: 20150312
  3. SOLUPRED [PREDNISOLONE METASULFOBENZOATE SODIUM] [Concomitant]
     Active Substance: PREDNISOLONE SODIUM METAZOATE
     Route: 065
     Dates: start: 20150415, end: 20150422
  4. ADVAGRAF [Concomitant]
     Active Substance: TACROLIMUS
     Route: 065
     Dates: start: 20170216, end: 20171201
  5. ADVAGRAF [Concomitant]
     Active Substance: TACROLIMUS
     Route: 065
     Dates: start: 20180323
  6. CERTICAN [Suspect]
     Active Substance: EVEROLIMUS
     Route: 065
     Dates: start: 20150313, end: 20150708
  7. SOLUPRED [PREDNISOLONE METASULFOBENZOATE SODIUM] [Concomitant]
     Active Substance: PREDNISOLONE SODIUM METAZOATE
     Indication: PRODUCT USED FOR UNKNOWN INDICATION
     Route: 065
     Dates: start: 20141105, end: 20141222
  8. SOLUPRED [PREDNISOLONE METASULFOBENZOATE SODIUM] [Concomitant]
     Active Substance: PREDNISOLONE SODIUM METAZOATE
     Route: 065
     Dates: start: 20150329, end: 20150406
  9. MYFORTIC [Suspect]
     Active Substance: MYCOPHENOLATE SODIUM
     Indication: LIVER TRANSPLANT
     Route: 065
     Dates: start: 20141031, end: 20160511
  10. SOLUPRED [PREDNISOLONE METASULFOBENZOATE SODIUM] [Concomitant]
     Active Substance: PREDNISOLONE SODIUM METAZOATE
     Route: 065
     Dates: start: 20150313, end: 20150320
  11. SOLUPRED [PREDNISOLONE METASULFOBENZOATE SODIUM] [Concomitant]
     Active Substance: PREDNISOLONE SODIUM METAZOATE
     Route: 065
     Dates: start: 20150407, end: 20150414
  12. ADVAGRAF [Concomitant]
     Active Substance: TACROLIMUS
     Route: 065
     Dates: start: 20160728, end: 20170215
  13. CERTICAN [Suspect]
     Active Substance: EVEROLIMUS
     Indication: IMMUNOSUPPRESSANT DRUG THERAPY
     Route: 065
     Dates: start: 20150109, end: 20150312
  14. MYFORTIC [Suspect]
     Active Substance: MYCOPHENOLATE SODIUM
     Indication: IMMUNOSUPPRESSANT DRUG THERAPY
     Route: 065
     Dates: start: 20160512, end: 20170202
  15. CORTANCYL [Concomitant]
     Active Substance: PREDNISONE
     Indication: PRODUCT USED FOR UNKNOWN INDICATION
     Route: 065
     Dates: start: 20150313, end: 20150320
  16. CORTANCYL [Concomitant]
     Active Substance: PREDNISONE
     Route: 065
     Dates: start: 20150329, end: 20150406
  17. CERTICAN [Suspect]
     Active Substance: EVEROLIMUS
     Indication: LIVER TRANSPLANT
     Route: 065
     Dates: start: 20141031, end: 20150108
  18. SOLUPRED [PREDNISOLONE METASULFOBENZOATE SODIUM] [Concomitant]
     Active Substance: PREDNISOLONE SODIUM METAZOATE
     Route: 065
     Dates: start: 20141223, end: 20150119
  19. ADVAGRAF [Concomitant]
     Active Substance: TACROLIMUS
     Route: 065
     Dates: start: 20171202, end: 20180322
  20. CORTANCYL [Concomitant]
     Active Substance: PREDNISONE
     Route: 065
     Dates: start: 20150407, end: 20150520
  21. SOLUPRED [PREDNISOLONE METASULFOBENZOATE SODIUM] [Concomitant]
     Active Substance: PREDNISOLONE SODIUM METAZOATE
     Route: 065
     Dates: start: 20150321, end: 20150328
  22. ADVAGRAF [Concomitant]
     Active Substance: TACROLIMUS
     Indication: PRODUCT USED FOR UNKNOWN INDICATION
     Route: 065
     Dates: start: 20150226, end: 20160727
  23. ADVAGRAF [Concomitant]
     Active Substance: TACROLIMUS
     Route: 065
     Dates: start: 20171202, end: 20180322
  24. CORTANCYL [Concomitant]
     Active Substance: PREDNISONE
     Route: 065
     Dates: start: 20150321, end: 20150328

REACTIONS (8)
  - Asthenia [Recovered/Resolved]
  - Chest pain [Not Recovered/Not Resolved]
  - Extrasystoles [Recovered/Resolved]
  - Gout [Recovered/Resolved]
  - Abdominal pain [Recovered/Resolved]
  - Hypertensive crisis [Recovering/Resolving]
  - Diarrhoea [Recovered/Resolved]
  - Oedema peripheral [Recovered/Resolved]

NARRATIVE: CASE EVENT DATE: 201703
